FAERS Safety Report 5270767-1 (Version None)
Quarter: 2007Q1

REPORT INFORMATION
  Report Type: 
  Country: None (occurrence: None)
  Receive Date: 20070319
  Receipt Date: 20070319
  Transmission Date: 20070707
  Serious: No
  Sender: FDA-Public Use
  Company Number: None

PATIENT
  Age: 26 Year
  Sex: Female
  Weight: 54.4316 kg

DRUGS (6)
  1. DEPO-PROVERA [Suspect]
     Indication: CONTRACEPTION
     Dosage: 150 MG/ML  Q 11-13 WKS  IM
     Route: 030
     Dates: start: 20051207
  2. DEPO-PROVERA [Suspect]
     Indication: CONTRACEPTION
     Dosage: 150 MG/ML  Q 11-13 WKS  IM
     Route: 030
     Dates: start: 20060301
  3. DEPO-PROVERA [Suspect]
     Indication: CONTRACEPTION
     Dosage: 150 MG/ML  Q 11-13 WKS  IM
     Route: 030
     Dates: start: 20060524
  4. DEPO-PROVERA [Suspect]
     Indication: CONTRACEPTION
     Dosage: 150 MG/ML  Q 11-13 WKS  IM
     Route: 030
     Dates: start: 20060810
  5. DEPO-PROVERA [Suspect]
     Indication: CONTRACEPTION
     Dosage: 150 MG/ML  Q 11-13 WKS  IM
     Route: 030
     Dates: start: 20061026
  6. DEPO-PROVERA [Suspect]
     Indication: CONTRACEPTION
     Dosage: 150 MG/ML  Q 11-13 WKS  IM
     Route: 030
     Dates: start: 20070117

REACTIONS (3)
  - DRUG EXPOSURE BEFORE PREGNANCY [None]
  - MALAISE [None]
  - PREGNANCY WITH INJECTABLE CONTRACEPTIVE [None]
